FAERS Safety Report 12090907 (Version 1)
Quarter: 2016Q1

REPORT INFORMATION
  Report Type: Spontaneous
  Country: DK (occurrence: DK)
  Receive Date: 20160218
  Receipt Date: 20160218
  Transmission Date: 20160526
  Serious: Yes (Other)
  Sender: FDA-Public Use
  Company Number: DK-JNJFOC-20160210126

PATIENT
  Age: 22 Year
  Sex: Female

DRUGS (3)
  1. FOLIMET [Concomitant]
     Route: 065
     Dates: start: 20150529
  2. SIMPONI [Suspect]
     Active Substance: GOLIMUMAB
     Indication: ARTHRITIS ENTEROPATHIC
     Route: 058
     Dates: start: 20150428, end: 20151022
  3. METHOTREXATE (METHOTREXATE SODIUM) [Suspect]
     Active Substance: METHOTREXATE SODIUM
     Indication: ARTHRITIS ENTEROPATHIC
     Route: 048
     Dates: start: 20150529, end: 20151022

REACTIONS (3)
  - Product use issue [Unknown]
  - Peritonsillar abscess [Recovered/Resolved]
  - Off label use [Unknown]

NARRATIVE: CASE EVENT DATE: 20150428
